FAERS Safety Report 7622875-5 (Version None)
Quarter: 2011Q3

REPORT INFORMATION
  Report Type: 
  Country: None (occurrence: None)
  Receive Date: 20110720
  Receipt Date: 20110708
  Transmission Date: 20111222
  Serious: Yes (Other)
  Sender: FDA-Public Use
  Company Number: US-ELI_LILLY_AND_COMPANY-US201107003491

PATIENT
  Sex: Female

DRUGS (10)
  1. POTASSIUM [Concomitant]
  2. VITAMIN D [Concomitant]
  3. FORTEO [Suspect]
     Indication: OSTEOPOROSIS
     Dosage: 20 UG, QD
     Route: 065
     Dates: start: 20110610
  4. CALCITONIN SALMON [Concomitant]
  5. PERIACTIN [Concomitant]
  6. ULTRAM [Concomitant]
  7. MULTIVITAMINS PLUS IRON [Concomitant]
  8. CALTRATE                           /00944201/ [Concomitant]
  9. TRICHLON [Concomitant]
  10. FISH OIL [Concomitant]

REACTIONS (5)
  - FEELING OF BODY TEMPERATURE CHANGE [None]
  - ANEURYSM [None]
  - BACK PAIN [None]
  - MALAISE [None]
  - DRUG DOSE OMISSION [None]
